FAERS Safety Report 21104911 (Version 1)
Quarter: 2022Q3

REPORT INFORMATION
  Report Type: Spontaneous
  Country: US (occurrence: None)
  Receive Date: 20220719
  Receipt Date: 20220719
  Transmission Date: 20221027
  Serious: Yes (Hospitalization)
  Sender: FDA-Public Use
  Company Number: None

PATIENT
  Age: 67 Year
  Sex: Female

DRUGS (8)
  1. AMBRISENTAN [Suspect]
     Active Substance: AMBRISENTAN
     Indication: Pulmonary hypertension
     Dosage: FREQUENCY : DAILY;?
     Route: 048
     Dates: start: 20180530
  2. SILDENAFIL [Concomitant]
     Active Substance: SILDENAFIL
  3. ASPIRIN [Concomitant]
     Active Substance: ASPIRIN
  4. OMEPRAZOLE [Concomitant]
     Active Substance: OMEPRAZOLE
  5. ESTRACE [Concomitant]
     Active Substance: ESTRADIOL
  6. LASIX [Concomitant]
     Active Substance: FUROSEMIDE
  7. K-TAB [Concomitant]
     Active Substance: POTASSIUM CHLORIDE
  8. lidocaine top patch [Concomitant]

REACTIONS (2)
  - Acute respiratory failure [None]
  - Diarrhoea [None]

NARRATIVE: CASE EVENT DATE: 20220712
